FAERS Safety Report 8461436-5 (Version None)
Quarter: 2012Q2

REPORT INFORMATION
  Report Type: 
  Country: None (occurrence: None)
  Receive Date: 20120625
  Receipt Date: 20120618
  Transmission Date: 20120825
  Serious: Yes (Other)
  Sender: FDA-Public Use
  Company Number: CA-JNJFOC-20120608960

PATIENT
  Sex: Male
  Weight: 87 kg

DRUGS (4)
  1. SIMPONI [Suspect]
     Indication: RHEUMATOID ARTHRITIS
     Route: 058
  2. COLACE [Concomitant]
  3. UNSPECIFIED SUPPOSITORY [Concomitant]
  4. PROCTOSEDYL [Concomitant]
     Indication: HAEMORRHOIDS

REACTIONS (2)
  - INTESTINAL OBSTRUCTION [None]
  - ACNE [None]
